FAERS Safety Report 5277790-1 (Version None)
Quarter: 2007Q1

REPORT INFORMATION
  Report Type: 
  Country: None (occurrence: None)
  Receive Date: 20070327
  Receipt Date: 20070313
  Transmission Date: 20070707
  Serious: Yes (Hospitalization)
  Sender: FDA-Public Use
  Company Number: US-ELI_LILLY_AND_COMPANY-US200702000413

PATIENT
  Age: 72 Year
  Sex: Female
  Weight: 56.235 kg

DRUGS (13)
  1. EVISTA [Suspect]
     Indication: OSTEOPOROSIS
     Dosage: 60 MG, DAILY (1/D)
     Route: 048
  2. INDERAL [Concomitant]
  3. SYNTHROID [Concomitant]
  4. PRILOSEC [Concomitant]
  5. LOTREL [Concomitant]
  6. LASIX [Concomitant]
  7. ZOCOR [Concomitant]
  8. KLONOPIN [Concomitant]
  9. ASPIRIN [Concomitant]
  10. MULTI-VITAMIN [Concomitant]
  11. IMITREX [Concomitant]
     Dosage: UNK, AS NEEDED
  12. REGLAN [Concomitant]
  13. FLEXERIL [Concomitant]

REACTIONS (4)
  - COLITIS ISCHAEMIC [None]
  - FAECES DISCOLOURED [None]
  - FIBROMYALGIA [None]
  - MYOFASCIAL PAIN SYNDROME [None]
